FAERS Safety Report 25433441 (Version 1)
Quarter: 2025Q2

REPORT INFORMATION
  Report Type: Spontaneous
  Country: US (occurrence: None)
  Receive Date: 20250613
  Receipt Date: 20250613
  Transmission Date: 20250717
  Serious: No
  Sender: MDD OPERATIONS
  Company Number: US-MDD US Operations-MDD202410-003767

PATIENT
  Age: 63 Year
  Sex: Female

DRUGS (23)
  1. APOKYN [Suspect]
     Active Substance: APOMORPHINE HYDROCHLORIDE
     Indication: Parkinson^s disease
     Dosage: 0.1 ML UNDER THE SKIN AS STARTER DOSE AND TITRATE BY 0.1 ML EVERY FEW DAYS UP TO EFFECTIVE MAXIMUM R
     Route: 058
     Dates: start: 20241004
  2. RYTARY [Concomitant]
     Active Substance: CARBIDOPA\LEVODOPA
     Indication: Parkinson^s disease
  3. RYTARY [Concomitant]
     Active Substance: CARBIDOPA\LEVODOPA
  4. MIRALAX [Concomitant]
     Active Substance: POLYETHYLENE GLYCOL 3350
  5. FISH OIL [Concomitant]
     Active Substance: FISH OIL
  6. REFRESH CLASSIC [Concomitant]
     Active Substance: POLYVINYL ALCOHOL\POVIDONE
  7. Coqmax-Omega [Concomitant]
  8. VIIBRYD [Concomitant]
     Active Substance: VILAZODONE HYDROCHLORIDE
  9. WELLBUTRIN [Concomitant]
     Active Substance: BUPROPION HYDROCHLORIDE
     Dosage: NOT PROVIDED
  10. BUSPIRONE HYDROCHLORIDE [Concomitant]
     Active Substance: BUSPIRONE HYDROCHLORIDE
  11. Ocuvite Adult 50 Plus [Concomitant]
  12. VITAMIN D3 [Concomitant]
     Active Substance: CHOLECALCIFEROL
  13. LASIX [Concomitant]
     Active Substance: FUROSEMIDE
  14. COLACE [Concomitant]
     Active Substance: DOCUSATE SODIUM
  15. ARICEPT [Concomitant]
     Active Substance: DONEPEZIL HYDROCHLORIDE
  16. TYLENOL [Concomitant]
     Active Substance: ACETAMINOPHEN
  17. METHOCARBAMOL [Concomitant]
     Active Substance: METHOCARBAMOL
  18. TOPROL XL [Concomitant]
     Active Substance: METOPROLOL SUCCINATE
     Dosage: NOT PROVIDED
  19. PRILOSEC OTC [Concomitant]
     Active Substance: OMEPRAZOLE MAGNESIUM
  20. LYRICA [Concomitant]
     Active Substance: PREGABALIN
  21. LOSARTAN POTASSIUM [Concomitant]
     Active Substance: LOSARTAN POTASSIUM
  22. SPIRONOLACTONE [Concomitant]
     Active Substance: SPIRONOLACTONE
  23. JARDIANCE [Concomitant]
     Active Substance: EMPAGLIFLOZIN

REACTIONS (6)
  - Nasal discomfort [Unknown]
  - Nasal congestion [Recovered/Resolved]
  - Chest discomfort [Unknown]
  - Nausea [Recovered/Resolved]
  - Adverse drug reaction [Unknown]
  - Drug tolerance [Unknown]

NARRATIVE: CASE EVENT DATE: 20241001
